FAERS Safety Report 7798205-5 (Version None)
Quarter: 2011Q4

REPORT INFORMATION
  Report Type: 
  Country: None (occurrence: None)
  Receive Date: 20111005
  Receipt Date: 20110928
  Transmission Date: 20120403
  Serious: Yes (Hospitalization)
  Sender: FDA-Public Use
  Company Number: CA-UCBSA-040232

PATIENT
  Sex: Female
  Weight: 63 kg

DRUGS (12)
  1. VITAMIN D [Concomitant]
     Indication: VITAMIN SUPPLEMENTATION
     Route: 048
  2. PREDNISONE [Concomitant]
     Indication: RHEUMATOID ARTHRITIS
     Dosage: 0-10 MG, INTERMITTENT
     Route: 048
     Dates: start: 20030101
  3. METHOTREXATE [Concomitant]
     Indication: RHEUMATOID ARTHRITIS
     Route: 058
     Dates: start: 20030101
  4. FOLIC ACID [Concomitant]
     Indication: RHEUMATOID ARTHRITIS
     Dosage: 2 MG OD 6/7
     Route: 048
     Dates: start: 20030101
  5. ELAVIL [Concomitant]
     Indication: FIBROMYALGIA
     Route: 048
  6. CIMZIA [Suspect]
     Indication: RHEUMATOID ARTHRITIS
     Route: 058
     Dates: start: 20110529, end: 20110817
  7. FOLIC ACID [Concomitant]
     Indication: VITAMIN SUPPLEMENTATION
     Dosage: 2 MG OD 6/7
     Route: 048
     Dates: start: 20030101
  8. LORAZEPAM [Concomitant]
     Indication: SLEEP DISORDER
     Dosage: AT BED TIME
     Route: 048
  9. CIMZIA [Suspect]
     Route: 058
     Dates: start: 20110404, end: 20110515
  10. CALCIUM CARBONATE [Concomitant]
     Indication: MINERAL SUPPLEMENTATION
     Route: 048
  11. TYLENOL W/ CODEINE NO. 3 [Concomitant]
     Indication: ANALGESIC THERAPY
     Dosage: I-II TABS, ONCE 4-6 HOURS
     Route: 048
  12. ACTONEL [Concomitant]
     Indication: OSTEOPOROSIS
     Route: 048

REACTIONS (2)
  - ABORTION SPONTANEOUS [None]
  - PREGNANCY [None]
